FAERS Safety Report 15759615 (Version 5)
Quarter: 2019Q4

REPORT INFORMATION
  Report Type: Spontaneous
  Country: CA (occurrence: CA)
  Receive Date: 20181226
  Receipt Date: 20191128
  Transmission Date: 20200122
  Serious: Yes (Other)
  Sender: FDA-Public Use
  Company Number: CA-CELLTRION INC.-2018CA018039

PATIENT

DRUGS (8)
  1. INFLECTRA [Suspect]
     Active Substance: INFLIXIMAB-DYYB
     Dosage: 590 MG EVERY 8 WEEKS
     Route: 042
     Dates: start: 20181026
  2. INFLECTRA [Suspect]
     Active Substance: INFLIXIMAB-DYYB
     Indication: CROHN^S DISEASE
     Dosage: 600 MG, (PRESCRIBED AS 590 MG, THEN EVERY 8 WEEKS)
     Route: 042
     Dates: start: 20180111
  3. SOLU-MEDROL [Concomitant]
     Active Substance: METHYLPREDNISOLONE SODIUM SUCCINATE
     Dosage: 30 MG, 3X/DAY
     Route: 042
     Dates: start: 20171225, end: 20180112
  4. FLAGYL [Concomitant]
     Active Substance: METRONIDAZOLE\METRONIDAZOLE HYDROCHLORIDE
     Dosage: 500MG Q8H
     Route: 042
     Dates: start: 20171225, end: 20180112
  5. VANCOMYCIN [Concomitant]
     Active Substance: VANCOMYCIN
     Dosage: 250MG QID
     Route: 048
     Dates: start: 20171225, end: 20180112
  6. INFLECTRA [Suspect]
     Active Substance: INFLIXIMAB-DYYB
     Dosage: 590 MG EVERY 8 WEEKS
     Route: 042
     Dates: start: 20181201
  7. INFLECTRA [Suspect]
     Active Substance: INFLIXIMAB-DYYB
     Dosage: 590 MG EVERY 8 WEEKS
     Route: 042
     Dates: start: 20181006
  8. PREDNISONE. [Concomitant]
     Active Substance: PREDNISONE
     Dosage: 40MG FOR 2 WEEKS THEN TAPPER 5MG WEEKLY
     Route: 065
     Dates: start: 20180112, end: 201803

REACTIONS (5)
  - Incorrect dose administered [Unknown]
  - Colitis ulcerative [Unknown]
  - Off label use [Unknown]
  - Inappropriate schedule of product administration [Unknown]
  - Intentional product use issue [Unknown]

NARRATIVE: CASE EVENT DATE: 20180111
